FAERS Safety Report 10091688 (Version 1)
Quarter: 2014Q2

REPORT INFORMATION
  Report Type: Spontaneous
  Country: US (occurrence: US)
  Receive Date: 20140421
  Receipt Date: 20140421
  Transmission Date: 20141212
  Serious: No
  Sender: FDA-Public Use
  Company Number: US-PURDUE-USA-2013-0108388

PATIENT
  Age: 40 Year
  Sex: Female

DRUGS (1)
  1. OXYCODONE HCL IMMEDIATE RELEASE (91-490) [Suspect]
     Indication: PAIN
     Dosage: 10 MG, Q6H
     Route: 048

REACTIONS (1)
  - Drug withdrawal syndrome [Unknown]
